FAERS Safety Report 14096249 (Version 1)
Quarter: 2017Q4

REPORT INFORMATION
  Report Type: Spontaneous
  Country: AR (occurrence: AR)
  Receive Date: 20171017
  Receipt Date: 20171017
  Transmission Date: 20180321
  Serious: Yes (Hospitalization)
  Sender: FDA-Public Use
  Company Number: AR-ASTRAZENECA-2017SF03824

PATIENT
  Age: 45 Day
  Sex: Male

DRUGS (2)
  1. NEXIUM [Suspect]
     Active Substance: ESOMEPRAZOLE MAGNESIUM
     Indication: GASTROOESOPHAGEAL REFLUX DISEASE
     Route: 048
     Dates: start: 20171009
  2. NEXIUM [Suspect]
     Active Substance: ESOMEPRAZOLE MAGNESIUM
     Indication: GASTROOESOPHAGEAL REFLUX DISEASE
     Route: 048
     Dates: start: 20171007, end: 20171008

REACTIONS (6)
  - Drug administration error [Unknown]
  - Apnoea [Unknown]
  - Insomnia [Unknown]
  - Eye disorder [Unknown]
  - Agitation [Unknown]
  - Off label use [Unknown]

NARRATIVE: CASE EVENT DATE: 20171007
